FAERS Safety Report 13937610 (Version 1)
Quarter: 2017Q3

REPORT INFORMATION
  Report Type: Spontaneous
  Country: CN (occurrence: CN)
  Receive Date: 20170905
  Receipt Date: 20170905
  Transmission Date: 20171127
  Serious: Yes (Hospitalization)
  Sender: FDA-Public Use
  Company Number: CN-PFIZER INC-2017378802

PATIENT
  Age: 32 Year
  Sex: Female
  Weight: 45 kg

DRUGS (1)
  1. METHOTREXATE. [Suspect]
     Active Substance: METHOTREXATE
     Indication: THERAPEUTIC PROCEDURE
     Dosage: 25 MG, 1X/DAY
     Route: 030
     Dates: start: 20170705, end: 20170709

REACTIONS (4)
  - Enteritis [Recovering/Resolving]
  - Mouth ulceration [Recovering/Resolving]
  - Gastrointestinal mucosal exfoliation [Recovering/Resolving]
  - Granulocyte count decreased [Recovering/Resolving]

NARRATIVE: CASE EVENT DATE: 20170709
